FAERS Safety Report 9344384 (Version 2)
Quarter: 2013Q3

REPORT INFORMATION
  Report Type: Report from Study
  Country: AU (occurrence: AU)
  Receive Date: 20130612
  Receipt Date: 20130708
  Transmission Date: 20140515
  Serious: Yes (Death, Hospitalization, Other)
  Sender: FDA-Public Use
  Company Number: AU-JNJFOC-20130606911

PATIENT
  Age: 87 Year
  Sex: Female

DRUGS (8)
  1. XARELTO [Suspect]
     Indication: ATRIAL FIBRILLATION
     Route: 048
     Dates: start: 20120716, end: 20130404
  2. XARELTO [Suspect]
     Indication: CEREBROVASCULAR ACCIDENT PROPHYLAXIS
     Route: 048
     Dates: start: 20120716, end: 20130404
  3. TRAMAL [Concomitant]
     Route: 065
     Dates: start: 20130206
  4. BETALOC [Concomitant]
     Route: 065
     Dates: start: 20120111
  5. DIGOXIN [Concomitant]
     Route: 065
     Dates: start: 20120905
  6. EFFEXOR [Concomitant]
     Route: 065
     Dates: start: 20100827
  7. LEXOTAN [Concomitant]
     Route: 065
     Dates: start: 20130204
  8. MICARDIS [Concomitant]
     Route: 065
     Dates: start: 20130204

REACTIONS (3)
  - Fall [Fatal]
  - Facial bones fracture [Fatal]
  - Subdural haematoma [Fatal]
